FAERS Safety Report 15525662 (Version 8)
Quarter: 2019Q1

REPORT INFORMATION
  Report Type: Spontaneous
  Country: US (occurrence: US)
  Receive Date: 20181019
  Receipt Date: 20190117
  Transmission Date: 20190417
  Serious: Yes (Hospitalization)
  Sender: FDA-Public Use
  Company Number: US-ACTELION-A-NJ2018-180433

PATIENT
  Age: 17 Year
  Sex: Male

DRUGS (30)
  1. ALLEGRA [Concomitant]
     Active Substance: FEXOFENADINE HYDROCHLORIDE
     Dosage: 180 MG, UNK
     Dates: start: 20181016
  2. GABAPENTIN. [Concomitant]
     Active Substance: GABAPENTIN
     Dosage: 600 MG, UNK
     Dates: start: 20181016
  3. METOLAZONE. [Concomitant]
     Active Substance: METOLAZONE
     Dosage: 5 MG, UNK
     Dates: start: 20181016
  4. SENNA-S [Concomitant]
     Active Substance: DOCUSATE SODIUM\SENNOSIDES
     Dosage: 8.6-50MG
     Dates: start: 20181016
  5. TYLENOL [Concomitant]
     Active Substance: ACETAMINOPHEN
     Dosage: 500 MG, UNK
     Dates: start: 20181016
  6. CHLOROTHIAZIDE. [Concomitant]
     Active Substance: CHLOROTHIAZIDE
     Dosage: 250 MG, UNK
     Dates: start: 20180413
  7. FUROSEMIDE. [Concomitant]
     Active Substance: FUROSEMIDE
     Dosage: 40 MG, UNK
     Dates: start: 20181016
  8. MELATONIN [Concomitant]
     Active Substance: MELATONIN
     Dosage: 3 MG, UNK
     Dates: start: 20181016
  9. OXYCODONE [Concomitant]
     Active Substance: OXYCODONE
     Dosage: 5 MG, UNK
     Dates: start: 20181016
  10. HYDROMORPHONE [Concomitant]
     Active Substance: HYDROMORPHONE
     Dosage: 2 MG, UNK
     Dates: start: 20181016
  11. GAS-X [Concomitant]
     Active Substance: DIMETHICONE
     Dosage: 125 MG, UNK
     Dates: start: 20181016
  12. SPIRONOLACTONE. [Concomitant]
     Active Substance: SPIRONOLACTONE
     Dosage: 25 MG, UNK
     Dates: start: 20181002
  13. WARFARIN [Concomitant]
     Active Substance: WARFARIN
     Dosage: 3 MG, UNK
     Dates: start: 20181016
  14. WARFARIN [Concomitant]
     Active Substance: WARFARIN
     Dosage: 4 UNK, UNK
  15. MULTIVITAMIN [Concomitant]
     Active Substance: VITAMINS
     Dosage: UNK
     Dates: start: 20181016
  16. SILDENAFIL. [Suspect]
     Active Substance: SILDENAFIL
     Dosage: 20 MG, UNK
     Route: 065
     Dates: start: 20180513
  17. OMEPRAZOLE. [Concomitant]
     Active Substance: OMEPRAZOLE
     Dosage: 40 MG, UNK
     Dates: start: 20181007
  18. TRACLEER [Suspect]
     Active Substance: BOSENTAN
     Indication: PULMONARY ARTERIAL HYPERTENSION
     Dosage: 62.5 MG, BID
     Route: 048
     Dates: start: 20181018
  19. ESCITALOPRAM [Concomitant]
     Active Substance: ESCITALOPRAM OXALATE
     Dosage: 10 MG, UNK
     Dates: start: 20180326
  20. GABAPENTIN. [Concomitant]
     Active Substance: GABAPENTIN
     Dosage: 300 MG, UNK
     Dates: start: 20180806
  21. ONDANSETRON [Concomitant]
     Active Substance: ONDANSETRON
  22. SPIRONOLACTONE. [Concomitant]
     Active Substance: SPIRONOLACTONE
     Dosage: 25 MG, UNK
     Dates: start: 20181029
  23. SUCRALFATE. [Concomitant]
     Active Substance: SUCRALFATE
     Dosage: 1 G, UNK
     Dates: start: 20181017
  24. SILDENAFIL. [Suspect]
     Active Substance: SILDENAFIL
     Indication: COR PULMONALE
     Dosage: 20 MG, TID
     Route: 065
     Dates: start: 20180210
  25. CYPROHEPTADIN [Concomitant]
  26. ESCITALOPRAM [Concomitant]
     Active Substance: ESCITALOPRAM OXALATE
     Dosage: 20 MG, UNK
     Dates: start: 20181016
  27. HYDROMORPHONE [Concomitant]
     Active Substance: HYDROMORPHONE
     Dosage: 4 UNK, UNK
     Dates: start: 20181101
  28. MIRALAX [Concomitant]
     Active Substance: POLYETHYLENE GLYCOL 3350
  29. LACTULOSE. [Concomitant]
     Active Substance: LACTULOSE
  30. WARFARIN [Concomitant]
     Active Substance: WARFARIN
     Dosage: 3 MG, UNK
     Dates: start: 20181101

REACTIONS (12)
  - Decreased appetite [Not Recovered/Not Resolved]
  - Vomiting [Not Recovered/Not Resolved]
  - Skin discolouration [Recovered/Resolved]
  - Peripheral swelling [Not Recovered/Not Resolved]
  - Hypotension [Unknown]
  - Contusion [Not Recovered/Not Resolved]
  - Insomnia [Not Recovered/Not Resolved]
  - Oedema [Not Recovered/Not Resolved]
  - Flushing [Not Recovered/Not Resolved]
  - Headache [Not Recovered/Not Resolved]
  - Abdominal pain [Not Recovered/Not Resolved]
  - Nausea [Not Recovered/Not Resolved]

NARRATIVE: CASE EVENT DATE: 2018
